FAERS Safety Report 12641221 (Version 7)
Quarter: 2022Q1

REPORT INFORMATION
  Report Type: Spontaneous
  Country: US (occurrence: US)
  Receive Date: 20160810
  Receipt Date: 20220126
  Transmission Date: 20220423
  Serious: Yes (Hospitalization)
  Sender: FDA-Public Use
  Company Number: US-PFIZER INC-2016350259

PATIENT
  Age: 59 Year
  Sex: Male
  Weight: 88.45 kg

DRUGS (3)
  1. RAPAMUNE [Suspect]
     Active Substance: SIROLIMUS
     Indication: Liver transplant
     Dosage: 1 MG, 1X/DAY (DAILY)
     Route: 048
     Dates: start: 2010
  2. RAPAMUNE [Suspect]
     Active Substance: SIROLIMUS
     Indication: Liver transplant rejection
     Dosage: 20 MG, DAILY
  3. RAPAMUNE [Suspect]
     Active Substance: SIROLIMUS
     Dosage: 1 MG, DAILY
     Route: 048

REACTIONS (3)
  - Drug level increased [Recovered/Resolved]
  - Off label use [Unknown]
  - Product dose omission issue [Unknown]

NARRATIVE: CASE EVENT DATE: 20100101
